FAERS Safety Report 4884331-7 (Version None)
Quarter: 2005Q4

REPORT INFORMATION
  Report Type: 
  Country: None (occurrence: None)
  Receive Date: 20051201
  Receipt Date: 20050824
  Transmission Date: 20060501
  Serious: No
  Sender: FDA-Public Use
  Company Number: 2005PV001569

PATIENT
  Age: 66 Year
  Sex: Female
  Weight: 81.6475 kg

DRUGS (8)
  1. BYETTA [Suspect]
     Indication: DIABETES MELLITUS NON-INSULIN-DEPENDENT
     Dosage: 5 MCG; BID; SC
     Route: 058
     Dates: start: 20050823
  2. SYNTHROID [Concomitant]
  3. GLUCOPHAGE XR [Concomitant]
  4. ALTACE [Concomitant]
  5. AMARYL [Concomitant]
  6. ZETIA [Concomitant]
  7. NOVOLOG [Concomitant]
  8. LANTUS [Concomitant]

REACTIONS (16)
  - ABDOMINAL DISCOMFORT [None]
  - ASTHENIA [None]
  - BLOOD GLUCOSE FLUCTUATION [None]
  - COLD SWEAT [None]
  - CONSTIPATION [None]
  - DRUG INEFFECTIVE [None]
  - DYSPEPSIA [None]
  - FATIGUE [None]
  - FEELING HOT [None]
  - FOOD POISONING [None]
  - GASTROINTESTINAL PAIN [None]
  - HOT FLUSH [None]
  - HYPERHIDROSIS [None]
  - NAUSEA [None]
  - STOMACH DISCOMFORT [None]
  - WEIGHT DECREASED [None]
